FAERS Safety Report 9929398 (Version 2)
Quarter: 2014Q1

REPORT INFORMATION
  Report Type: Report from Study
  Country: US (occurrence: US)
  Receive Date: 20140227
  Receipt Date: 20140227
  Transmission Date: 20141002
  Serious: Yes (Hospitalization)
  Sender: FDA-Public Use
  Company Number: US-BRISTOL-MYERS SQUIBB COMPANY-19127422

PATIENT
  Age: 62 Year
  Sex: Female
  Weight: 89.1 kg

DRUGS (12)
  1. BELATACEPT [Suspect]
     Indication: RENAL TRANSPLANT
     Dosage: 16JUL13
     Route: 042
     Dates: start: 20130909
  2. MYCOPHENOLATE MOFETIL [Suspect]
     Dates: start: 20130128
  3. BACTRIM [Concomitant]
     Dates: start: 20130128
  4. HUMALOG [Concomitant]
  5. NPH [Concomitant]
  6. SIMVASTATIN [Concomitant]
  7. SYNTHROID [Concomitant]
  8. NEURONTIN [Concomitant]
  9. COREG [Concomitant]
  10. ALBUTEROL [Concomitant]
  11. ZOCOR [Concomitant]
  12. NOVOLIN [Concomitant]
     Dosage: N 20 U

REACTIONS (2)
  - Urosepsis [Unknown]
  - Diabetic gangrene [Recovered/Resolved]
